FAERS Safety Report 5127729-4 (Version None)
Quarter: 2006Q4

REPORT INFORMATION
  Report Type: 
  Country: None (occurrence: None)
  Receive Date: 20061016
  Receipt Date: 20061006
  Transmission Date: 20070319
  Serious: Yes (Other)
  Sender: FDA-Public Use
  Company Number: FR-GLAXOSMITHKLINE-B0441990A

PATIENT
  Age: 45 Year
  Sex: Female

DRUGS (2)
  1. IMIGRANE [Suspect]
     Indication: MIGRAINE
     Dosage: 50MG PER DAY
     Route: 048
  2. ATARAX [Concomitant]
     Indication: ECZEMA
     Dosage: .5TAB PER DAY
     Route: 048

REACTIONS (3)
  - ANXIETY [None]
  - DRUG ABUSER [None]
  - NAUSEA [None]
